FAERS Safety Report 18183001 (Version 1)
Quarter: 2020Q3

REPORT INFORMATION
  Report Type: Spontaneous
  Country: US (occurrence: US)
  Receive Date: 20200821
  Receipt Date: 20200821
  Transmission Date: 20201103
  Serious: No
  Sender: FDA-Public Use
  Company Number: US-SA-2020SA217452

PATIENT

DRUGS (9)
  1. DUPIXENT [Suspect]
     Active Substance: DUPILUMAB
     Indication: DERMATITIS ATOPIC
     Dosage: 300 MG, QOW
     Route: 058
     Dates: start: 20200722
  2. TACROLIMUS. [Concomitant]
     Active Substance: TACROLIMUS
  3. OZEMPIC [Concomitant]
     Active Substance: SEMAGLUTIDE
  4. GEMFIBROZIL. [Concomitant]
     Active Substance: GEMFIBROZIL
  5. TRAMADOL. [Concomitant]
     Active Substance: TRAMADOL
  6. SYNJARDY [Concomitant]
     Active Substance: EMPAGLIFLOZIN\METFORMIN HYDROCHLORIDE
  7. DUPIXENT [Suspect]
     Active Substance: DUPILUMAB
     Dosage: 300 MG, QOW
     Route: 058
     Dates: start: 2020
  8. LOSARTAN. [Concomitant]
     Active Substance: LOSARTAN
  9. METOPROLOL. [Concomitant]
     Active Substance: METOPROLOL

REACTIONS (3)
  - Product dose omission issue [Unknown]
  - Eczema [Not Recovered/Not Resolved]
  - Product use issue [Unknown]

NARRATIVE: CASE EVENT DATE: 2020
